FAERS Safety Report 5327198-5 (Version None)
Quarter: 2007Q2

REPORT INFORMATION
  Report Type: 
  Country: None (occurrence: None)
  Receive Date: 20070517
  Receipt Date: 20070510
  Transmission Date: 20071010
  Serious: Yes (Hospitalization)
  Sender: FDA-Public Use
  Company Number: DE-AMGEN-US213840

PATIENT
  Sex: Female
  Weight: 37 kg

DRUGS (3)
  1. ENBREL [Suspect]
     Indication: JUVENILE ARTHRITIS
     Route: 058
     Dates: start: 20030601, end: 20070201
  2. METHOTREXATE [Concomitant]
     Indication: JUVENILE ARTHRITIS
     Route: 058
     Dates: start: 20010501
  3. PREDNISONE TAB [Concomitant]
     Indication: JUVENILE ARTHRITIS
     Dosage: VARYING DOSES, DAILY
     Route: 048

REACTIONS (1)
  - CROHN'S DISEASE [None]
